FAERS Safety Report 13820935 (Version 2)
Quarter: 2017Q3

REPORT INFORMATION
  Report Type: Spontaneous
  Country: CA (occurrence: CA)
  Receive Date: 20170801
  Receipt Date: 20170919
  Transmission Date: 20171127
  Serious: Yes (Other)
  Sender: FDA-Public Use
  Company Number: CA-PFIZER INC-2017260042

PATIENT
  Age: 69 Year
  Sex: Female

DRUGS (1)
  1. SULFASALAZINE. [Suspect]
     Active Substance: SULFASALAZINE
     Indication: RHEUMATOID ARTHRITIS
     Dosage: 1000 MG, 2X/DAY (ALSO REPORTED FROM AUG2015 TO JAN2016 AT 1.5 G, DAILY)
     Route: 048
     Dates: start: 20150802, end: 20160127

REACTIONS (4)
  - Drug ineffective [Recovered/Resolved]
  - Drug intolerance [Recovered/Resolved]
  - Cataract [Not Recovered/Not Resolved]
  - Nausea [Recovered/Resolved]
